FAERS Safety Report 14359499 (Version 1)
Quarter: 2018Q1

REPORT INFORMATION
  Report Type: Report from Study
  Country: US (occurrence: US)
  Receive Date: 20180105
  Receipt Date: 20180105
  Transmission Date: 20180509
  Serious: Yes (Other)
  Sender: FDA-Public Use
  Company Number: US-VIFOR (INTERNATIONAL) INC.-VIT-2017-08071

PATIENT
  Age: 30 Year
  Sex: Male

DRUGS (2)
  1. VELTASSA [Suspect]
     Active Substance: PATIROMER
     Indication: PRODUCT USED FOR UNKNOWN INDICATION
     Dates: start: 20170727
  2. VELTASSA [Suspect]
     Active Substance: PATIROMER
     Dates: start: 201708

REACTIONS (3)
  - Off label use [Unknown]
  - Blood potassium increased [Unknown]
  - Dialysis [Unknown]

NARRATIVE: CASE EVENT DATE: 2017
